FAERS Safety Report 23445681 (Version 1)
Quarter: 2024Q1

REPORT INFORMATION
  Report Type: Other
  Country: PL (occurrence: PL)
  Receive Date: 20240126
  Receipt Date: 20240126
  Transmission Date: 20240410
  Serious: Yes (Death)
  Sender: FDA-Public Use
  Company Number: None

PATIENT
  Age: 69 Year
  Sex: Male
  Weight: 113 kg

DRUGS (2)
  1. OMNIPAQUE [Suspect]
     Active Substance: IOHEXOL
     Indication: Angiogram
     Dosage: 75 ML, TOTAL
     Route: 042
     Dates: start: 20231221, end: 20231221
  2. NITROGLYCERIN [Concomitant]
     Active Substance: NITROGLYCERIN
     Dosage: 1 EQ, QD, AS NEEDED
     Route: 050
     Dates: start: 20231221

REACTIONS (1)
  - Death [Fatal]

NARRATIVE: CASE EVENT DATE: 20231221
